FAERS Safety Report 9880489 (Version 1)
Quarter: 2014Q1

REPORT INFORMATION
  Report Type: Spontaneous
  Country: FR (occurrence: None)
  Receive Date: 20140205
  Receipt Date: 20140205
  Transmission Date: 20141002
  Serious: Yes (Hospitalization)
  Sender: FDA-Public Use
  Company Number: DSM-2014-00087

PATIENT
  Age: 76 Year
  Sex: Female
  Weight: 50 kg

DRUGS (11)
  1. ALTEIS DUO (HYDROCHLOROTHIAZIDE, OLMESARTAN MEDOXOMIL) (TABLET) [Suspect]
     Indication: HYPERTENSION
     Dates: end: 20140107
  2. MONO-TILDIEM(DILTIAZEM HYDROCHLORIDE)TABLET(DILTIAZEM HYDROCHLORIDE) [Concomitant]
  3. OZEOL(BALMBUTEROL HYDROCHLORIDE)(TABLET)(BAMBUTEROL HYDROCHLORIDE) [Concomitant]
  4. VASTEN(PRVASTATIN SODIUM)(TABLET)(PRAVASTATIN SODIUM) [Concomitant]
  5. PULMICORT(BUDESONIDE)(400 MICROGRAM)(BUDESONIDE) [Concomitant]
  6. BRICANYL(TERBUTALINE SULFATE)(500 MICROGRAM)(TERBUTALINE SULFATE) [Concomitant]
  7. DOLIPRANE (PARACETAMOL) [Suspect]
  8. ZOPICLONE(ZOPICLINE)(ZOPICLONE) [Concomitant]
  9. AZOPT(BRINZOLAMIDE)(10 MILLIGRAM/MILLILITERS)(BRINZOLAMIDE) [Concomitant]
  10. TRAMADOL HYDROCHLORIDE (TRAMADOL HYDROCHLORIDE)959 MILLIGRAM)(TRAMADOL HYDROCHLORIDE) [Concomitant]
  11. ACTONEL COMI D (CALCIUM CARBONATE, RISEDRONATE SODIUM(CALCIUM CARBONATE, RISEDRONATE SODIUM) [Concomitant]

REACTIONS (4)
  - Renal failure acute [None]
  - Gastroenteritis [None]
  - Weight decreased [None]
  - Decreased appetite [None]
